FAERS Safety Report 6228483-5 (Version None)
Quarter: 2009Q2

REPORT INFORMATION
  Report Type: 
  Country: None (occurrence: None)
  Receive Date: 20090612
  Receipt Date: 20090610
  Transmission Date: 20091009
  Serious: Yes (Other)
  Sender: FDA-Public Use
  Company Number: US-AMGEN-US349614

PATIENT
  Sex: Male
  Weight: 100 kg

DRUGS (13)
  1. NPLATE [Suspect]
     Indication: IDIOPATHIC THROMBOCYTOPENIC PURPURA
     Route: 058
     Dates: start: 20090513
  2. NOVOLOG [Suspect]
  3. LISINOPRIL [Concomitant]
  4. LANTUS [Concomitant]
  5. DECADRON [Concomitant]
  6. CORTICOSTEROIDS [Concomitant]
     Dates: start: 20090219
  7. RITUXIMAB [Concomitant]
     Dates: start: 20090319, end: 20090604
  8. BACTRIM DS [Concomitant]
  9. NORVASC [Concomitant]
  10. DECADRON [Concomitant]
  11. PROTONIX [Concomitant]
  12. MIRALAX [Concomitant]
  13. SENOKOT [Concomitant]

REACTIONS (3)
  - BLOOD GLUCOSE ABNORMAL [None]
  - LIVER FUNCTION TEST ABNORMAL [None]
  - WEIGHT DECREASED [None]
